FAERS Safety Report 12828632 (Version 1)
Quarter: 2016Q4

REPORT INFORMATION
  Report Type: Spontaneous
  Country: US (occurrence: US)
  Receive Date: 20161007
  Receipt Date: 20161007
  Transmission Date: 20170207
  Serious: No
  Sender: FDA-Public Use
  Company Number: US-SA-2015SA207599

PATIENT
  Age: 47 Year

DRUGS (3)
  1. AMANTADINE [Concomitant]
     Active Substance: AMANTADINE
  2. ADVIL [Concomitant]
     Active Substance: IBUPROFEN
  3. AUBAGIO [Suspect]
     Active Substance: TERIFLUNOMIDE
     Indication: MULTIPLE SCLEROSIS
     Dosage: THERAPY START DATE: 2 MONTHS AGO
     Route: 048
     Dates: start: 201509

REACTIONS (4)
  - Dysuria [Unknown]
  - Pollakiuria [Unknown]
  - Chest pain [Unknown]
  - Dyspnoea [Unknown]

NARRATIVE: CASE EVENT DATE: 201509
